FAERS Safety Report 7236253-4 (Version None)
Quarter: 2011Q1

REPORT INFORMATION
  Report Type: 
  Country: None (occurrence: None)
  Receive Date: 20110111
  Receipt Date: 20101231
  Transmission Date: 20110831
  Serious: Yes (Hospitalization, Other)
  Sender: FDA-Public Use
  Company Number: 2009SP023393

PATIENT
  Age: 17 Year
  Sex: Female
  Weight: 72.5755 kg

DRUGS (1)
  1. NUVARING [Suspect]
     Indication: CONTRACEPTION
     Dates: start: 20030601, end: 20031014

REACTIONS (14)
  - DEEP VEIN THROMBOSIS [None]
  - BIPOLAR DISORDER [None]
  - CYSTITIS [None]
  - PNEUMONIA [None]
  - MENORRHAGIA [None]
  - OVARIAN CYST [None]
  - HYPOTHYROIDISM [None]
  - DRUG HYPERSENSITIVITY [None]
  - URINARY TRACT INFECTION [None]
  - ENDOCRINE DISORDER [None]
  - HYPERCOAGULATION [None]
  - PYELONEPHRITIS [None]
  - AMENORRHOEA [None]
  - DRUG EXPOSURE BEFORE PREGNANCY [None]
